FAERS Safety Report 25720956 (Version 1)
Quarter: 2025Q3

REPORT INFORMATION
  Report Type: Spontaneous
  Country: CH (occurrence: CH)
  Receive Date: 20250825
  Receipt Date: 20250825
  Transmission Date: 20251021
  Serious: Yes (Hospitalization, Other)
  Sender: ASTELLAS
  Company Number: None

PATIENT
  Age: 62 Year
  Sex: Male
  Weight: 54.55 kg

DRUGS (19)
  1. PROGRAF [Suspect]
     Active Substance: TACROLIMUS
     Indication: Prophylaxis against transplant rejection
     Dosage: 2X/DAY, 12
     Route: 065
     Dates: start: 20241230, end: 20250115
  2. PROGRAF [Suspect]
     Active Substance: TACROLIMUS
     Dosage: 2X/DAY, 12
     Route: 065
     Dates: start: 20250116, end: 20250119
  3. PROGRAF [Suspect]
     Active Substance: TACROLIMUS
     Dosage: 2X/DAY, 12
     Route: 065
     Dates: start: 20250120, end: 20250404
  4. PROGRAF [Suspect]
     Active Substance: TACROLIMUS
     Dosage: 2X/DAY, 12
     Route: 065
     Dates: start: 20250408, end: 20250410
  5. PROGRAF [Suspect]
     Active Substance: TACROLIMUS
     Dosage: 2X/DAY, 12
     Route: 065
     Dates: start: 20250411, end: 20250507
  6. PROGRAF [Suspect]
     Active Substance: TACROLIMUS
     Dosage: 2X/DAY, 12
     Route: 065
     Dates: start: 20250508, end: 20250613
  7. PROGRAF [Suspect]
     Active Substance: TACROLIMUS
     Dosage: 2X/DAY, 12
     Route: 065
     Dates: start: 20250614, end: 20250707
  8. PROGRAF [Suspect]
     Active Substance: TACROLIMUS
     Dosage: 2X/DAY, 12
     Route: 065
     Dates: start: 20250708
  9. ISAVUCONAZOLE [Suspect]
     Active Substance: ISAVUCONAZOLE
     Indication: Product used for unknown indication
     Dosage: 200 MG/DAY
     Route: 065
     Dates: start: 20250326, end: 20250710
  10. MYFORTIC [Suspect]
     Active Substance: MYCOPHENOLATE SODIUM
     Indication: Product used for unknown indication
     Dosage: 2X/D, 12
     Route: 065
     Dates: start: 20250117, end: 20250710
  11. MYFORTIC [Suspect]
     Active Substance: MYCOPHENOLATE SODIUM
     Dosage: 4X/D, 6
     Route: 065
     Dates: start: 20250711, end: 20250717
  12. MYFORTIC [Suspect]
     Active Substance: MYCOPHENOLATE SODIUM
     Dosage: 2X/D, 12
     Route: 065
     Dates: start: 20250718
  13. VALGANCICLOVIR [Suspect]
     Active Substance: VALGANCICLOVIR
     Indication: Product used for unknown indication
     Dosage: 2X/DAY, 12
     Route: 065
     Dates: start: 20250107, end: 20250613
  14. VALGANCICLOVIR [Suspect]
     Active Substance: VALGANCICLOVIR
     Route: 065
     Dates: start: 20250614, end: 20250704
  15. VALGANCICLOVIR [Suspect]
     Active Substance: VALGANCICLOVIR
     Dosage: 1X/48H
     Route: 065
     Dates: start: 20250705, end: 20250707
  16. VALGANCICLOVIR [Suspect]
     Active Substance: VALGANCICLOVIR
     Route: 065
     Dates: start: 20250708, end: 20250714
  17. ATOVAQUONE [Concomitant]
     Active Substance: ATOVAQUONE
     Indication: Product used for unknown indication
     Dosage: ONGOING
     Route: 065
     Dates: start: 20241230
  18. PREDNISONE [Concomitant]
     Active Substance: PREDNISONE
     Indication: Product used for unknown indication
     Route: 065
     Dates: start: 20241230, end: 20250506
  19. PREDNISONE [Concomitant]
     Active Substance: PREDNISONE
     Dosage: ONGOING
     Route: 065
     Dates: start: 20250507

REACTIONS (5)
  - Acute kidney injury [Recovered/Resolved]
  - Acute kidney injury [Recovering/Resolving]
  - Acute kidney injury [Recovering/Resolving]
  - Toxicity to various agents [Unknown]
  - Off label use [Unknown]

NARRATIVE: CASE EVENT DATE: 20241230
